FAERS Safety Report 5697795-6 (Version None)
Quarter: 2008Q2

REPORT INFORMATION
  Report Type: 
  Country: None (occurrence: None)
  Receive Date: 20080408
  Receipt Date: 20080401
  Transmission Date: 20081010
  Serious: Yes (Hospitalization, Other)
  Sender: FDA-Public Use
  Company Number: US-MERCK-0804USA00400

PATIENT
  Age: 14 Year
  Sex: Male
  Weight: 43 kg

DRUGS (10)
  1. SINGULAIR [Suspect]
     Indication: ASTHMA
     Route: 048
     Dates: start: 20080325
  2. SINGULAIR [Suspect]
     Route: 048
     Dates: start: 20080330, end: 20080330
  3. ALBUTEROL [Concomitant]
     Indication: COUGH
  4. ALBUTEROL [Concomitant]
     Indication: WHEEZING
  5. FLOVENT [Concomitant]
  6. IBUPROFEN [Suspect]
     Indication: MUSCLE STRAIN
     Route: 065
  7. IBUPROFEN [Suspect]
     Route: 065
     Dates: start: 20080330, end: 20080330
  8. IBUPROFEN [Suspect]
     Indication: ARTHRALGIA
     Route: 065
  9. IBUPROFEN [Suspect]
     Route: 065
     Dates: start: 20080330, end: 20080330
  10. PULMICORT [Concomitant]
     Route: 065

REACTIONS (2)
  - INTENTIONAL OVERDOSE [None]
  - SUICIDE ATTEMPT [None]
